FAERS Safety Report 12365163 (Version 2)
Quarter: 2016Q2

REPORT INFORMATION
  Report Type: Spontaneous
  Country: FR (occurrence: FR)
  Receive Date: 20160513
  Receipt Date: 20160516
  Transmission Date: 20160815
  Serious: Yes (Other)
  Sender: FDA-Public Use
  Company Number: FR-VERTEX PHARMACEUTICALS-2016-003084

PATIENT
  Age: 19 Year
  Sex: Male

DRUGS (1)
  1. ORKAMBI [Suspect]
     Active Substance: IVACAFTOR\LUMACAFTOR
     Indication: CYSTIC FIBROSIS
     Dosage: 2 DF, QD
     Route: 048
     Dates: start: 20160503, end: 20160504

REACTIONS (3)
  - Epilepsy [Unknown]
  - Speech disorder [Unknown]
  - Bite [Unknown]

NARRATIVE: CASE EVENT DATE: 201605
